FAERS Safety Report 9580039 (Version 2)
Quarter: 2013Q4

REPORT INFORMATION
  Report Type: Spontaneous
  Country: US (occurrence: US)
  Receive Date: 20131002
  Receipt Date: 20131114
  Transmission Date: 20140711
  Serious: Yes (Other)
  Sender: FDA-Public Use
  Company Number: US-ASTRAZENECA-2013SE71700

PATIENT
  Age: 902 Month
  Sex: Female
  Weight: 56.7 kg

DRUGS (4)
  1. SYMBICORT [Suspect]
     Indication: ASTHMA
     Dosage: 320/6 MCG DAILY
     Route: 055
     Dates: start: 1999
  2. SYMBICORT [Suspect]
     Indication: ASTHMA
     Dosage: 160MCG/ 4.5MCG, 2 PUFFS BID
     Route: 055
     Dates: start: 20130913
  3. SINGULAIR [Concomitant]
     Indication: ASTHMA
  4. XYZL [Concomitant]
     Indication: HYPERSENSITIVITY

REACTIONS (3)
  - Skin cancer [Unknown]
  - Dyspnoea [Unknown]
  - Drug dose omission [Unknown]
